FAERS Safety Report 4679668-0 (Version None)
Quarter: 2005Q2

REPORT INFORMATION
  Report Type: 
  Country: None (occurrence: None)
  Receive Date: 20050602
  Receipt Date: 20050524
  Transmission Date: 20051028
  Serious: Yes (Life-Threatening, Hospitalization)
  Sender: FDA-Public Use
  Company Number: AU-BRISTOL-MYERS SQUIBB COMPANY-12979647

PATIENT
  Age: 65 Year
  Sex: Female

DRUGS (8)
  1. KARVEZIDE TABS 300MG/12.5MG [Suspect]
     Indication: ESSENTIAL HYPERTENSION
     Dosage: DOSAGE FORM = 300 MG / 12.5 MG
     Route: 048
     Dates: end: 20041123
  2. METFORMIN HCL [Suspect]
     Indication: DIABETES MELLITUS
     Route: 048
     Dates: end: 20041123
  3. ATENOLOL [Suspect]
     Indication: ESSENTIAL HYPERTENSION
     Route: 048
     Dates: end: 20041123
  4. FRUSEMIDE [Suspect]
     Indication: ESSENTIAL HYPERTENSION
     Route: 048
     Dates: end: 20041123
  5. VERAPAMIL HCL [Suspect]
     Indication: ESSENTIAL HYPERTENSION
     Route: 048
     Dates: end: 20041123
  6. AMARYL [Concomitant]
     Indication: DIABETES MELLITUS
     Dosage: START DATE: S TERM
     Route: 048
  7. ALLOPURINOL [Concomitant]
     Indication: GOUT
     Route: 048
  8. CLOPIDOGREL BISULFATE [Concomitant]
     Route: 048
     Dates: end: 20041123

REACTIONS (7)
  - ATRIOVENTRICULAR BLOCK FIRST DEGREE [None]
  - BRADYCARDIA [None]
  - DIZZINESS [None]
  - HYPOTENSION [None]
  - LACTIC ACIDOSIS [None]
  - MALAISE [None]
  - RENAL FAILURE ACUTE [None]
